FAERS Safety Report 7621640-2 (Version None)
Quarter: 2011Q3

REPORT INFORMATION
  Report Type: 
  Country: None (occurrence: None)
  Receive Date: 20110719
  Receipt Date: 20110708
  Transmission Date: 20111222
  Serious: Yes (Hospitalization)
  Sender: FDA-Public Use
  Company Number: SE-ASTRAZENECA-2011SE41141

PATIENT
  Age: 85 Year
  Sex: Male

DRUGS (12)
  1. POTASSIUM CHLORIDE [Suspect]
     Indication: NEPHROPATHY
     Route: 048
     Dates: start: 20110322
  2. NEORECORMON [Concomitant]
  3. NATRIUMBIKARBONAT [Concomitant]
  4. ETALPHA [Concomitant]
  5. METOPROLOL TARTRATE [Suspect]
     Indication: ESSENTIAL HYPERTENSION
     Route: 048
  6. FUROSEMIDE [Suspect]
     Indication: NEPHROPATHY
     Route: 048
  7. ATARAX [Concomitant]
  8. FELODIPINE [Suspect]
     Indication: ESSENTIAL HYPERTENSION
     Route: 048
  9. DOXAZOSIN MESYLATE [Suspect]
     Indication: ESSENTIAL HYPERTENSION
     Route: 048
     Dates: start: 20110322
  10. PAMOL [Concomitant]
  11. LEVOTHYROXINE SODIUM [Concomitant]
  12. IMOVANE [Concomitant]

REACTIONS (2)
  - HYPERKALAEMIA [None]
  - SYNCOPE [None]
